FAERS Safety Report 6870954-2 (Version None)
Quarter: 2010Q3

REPORT INFORMATION
  Report Type: 
  Country: None (occurrence: None)
  Receive Date: 20100723
  Receipt Date: 20100715
  Transmission Date: 20110219
  Serious: Yes (Other)
  Sender: FDA-Public Use
  Company Number: JP-BRISTOL-MYERS SQUIBB COMPANY-15204324

PATIENT

DRUGS (2)
  1. ABILIFY [Suspect]
     Route: 048
  2. DEPAKENE [Interacting]
     Dosage: DEPAKENE-R TABS
     Route: 048
     Dates: start: 20100714

REACTIONS (2)
  - CONVULSION [None]
  - DRUG INTERACTION [None]
